FAERS Safety Report 5959041-5 (Version None)
Quarter: 2008Q4

REPORT INFORMATION
  Report Type: 
  Country: None (occurrence: None)
  Receive Date: 20081120
  Receipt Date: 20081114
  Transmission Date: 20090506
  Serious: Yes (Hospitalization)
  Sender: FDA-Public Use
  Company Number: US-JNJFOC-20081103947

PATIENT
  Sex: Male
  Weight: 67.13 kg

DRUGS (8)
  1. HALDOL [Suspect]
     Indication: ANXIETY
     Route: 065
  2. DURAGESIC-100 [Suspect]
     Route: 062
  3. DURAGESIC-100 [Suspect]
     Route: 062
  4. DURAGESIC-100 [Suspect]
     Indication: PAIN
     Route: 062
  5. COUMADIN [Concomitant]
     Dosage: EVERY OTHER DAY
     Route: 048
  6. COUMADIN [Concomitant]
     Indication: ANTICOAGULANT THERAPY
     Dosage: EVERY OTHER DAY
     Route: 048
  7. XANAX [Concomitant]
     Indication: ANXIETY
     Route: 048
  8. NEURONTIN [Concomitant]
     Indication: PAIN
     Route: 048

REACTIONS (4)
  - DRUG INEFFECTIVE [None]
  - PARALYSIS [None]
  - QUALITY OF LIFE DECREASED [None]
  - STAPHYLOCOCCAL INFECTION [None]
